FAERS Safety Report 5684998-X (Version None)
Quarter: 2008Q1

REPORT INFORMATION
  Report Type: 
  Country: None (occurrence: None)
  Receive Date: 20080328
  Receipt Date: 19970217
  Transmission Date: 20080703
  Serious: Yes (Death, Other)
  Sender: FDA-Public Use
  Company Number: US-ROCHE-76481

PATIENT
  Age: 75 Year
  Sex: Female

DRUGS (2)
  1. ROCEPHIN [Suspect]
     Indication: PNEUMONIA
     Route: 030
     Dates: start: 19970106, end: 19970108
  2. LASIX [Concomitant]
     Dates: end: 19970109

REACTIONS (7)
  - DEATH [None]
  - DYSPNOEA [None]
  - FLUSHING [None]
  - HYPERSENSITIVITY [None]
  - LETHARGY [None]
  - RASH [None]
  - SWELLING FACE [None]
